FAERS Safety Report 23653903 (Version 2)
Quarter: 2024Q1

REPORT INFORMATION
  Report Type: Report from Study
  Country: EG (occurrence: EG)
  Receive Date: 20240320
  Receipt Date: 20240323
  Transmission Date: 20240409
  Serious: Yes (Disabling, Other)
  Sender: FDA-Public Use
  Company Number: EG-002147023-NVSC2024EG056178

PATIENT
  Age: 39 Year
  Sex: Male

DRUGS (4)
  1. MAYZENT [Suspect]
     Active Substance: SIPONIMOD
     Indication: Multiple sclerosis
     Dosage: 1 DOSAGE FORM, QD 11 DAYS AGO
     Route: 048
  2. BACLOFEN [Concomitant]
     Active Substance: BACLOFEN
     Indication: Muscle relaxant therapy
     Dosage: 10 MG, QD (2 TABLETS) ,4 OR 5 YEARS AGO
     Route: 065
  3. NAFRONYL [Concomitant]
     Active Substance: NAFRONYL
     Indication: Sensation of blood flow
     Dosage: 2 TABLETS DAILY ,4 OR 5 YEARS AGO
     Route: 065
  4. PANADOL EXTRA [Concomitant]
     Active Substance: ACETAMINOPHEN\CAFFEINE
     Indication: Drug abuse
     Dosage: 1 TABLET DAILY 4 OR 5 YEARS AGO
     Route: 065

REACTIONS (4)
  - Fatigue [Not Recovered/Not Resolved]
  - Gait disturbance [Not Recovered/Not Resolved]
  - Somnolence [Unknown]
  - General physical health deterioration [Unknown]

NARRATIVE: CASE EVENT DATE: 20240301
